FAERS Safety Report 16145999 (Version 1)
Quarter: 2019Q2

REPORT INFORMATION
  Report Type: Spontaneous
  Country: US (occurrence: US)
  Receive Date: 20190227
  Receipt Date: 20190227
  Transmission Date: 20190711
  Serious: Yes (Disabling)
  Sender: FDA-Public Use
  Company Number: None

PATIENT
  Age: 66 Year
  Sex: Female
  Weight: 55.34 kg

DRUGS (10)
  1. LEVOFLOXACIN 500MG TABLET [Suspect]
     Active Substance: LEVOFLOXACIN
     Indication: PNEUMONIA
     Dosage: ?          QUANTITY:500 MG MILLIGRAM(S);OTHER FREQUENCY:1 EVERY 24 HRS;?
     Route: 048
     Dates: start: 20181224, end: 20190103
  2. MULTI-VITAMIN [Concomitant]
     Active Substance: .ALPHA.-TOCOPHEROL ACETATE, DL-\ASCORBIC ACID\CYANOCOBALAMIN\FLUORIDE ION\FOLIC ACID\NIACIN\PYRIDOXINE\RIBOFLAVIN\THIAMINE\VITAMIN A\VITAMIN D
  3. ZOLOFT [Concomitant]
     Active Substance: SERTRALINE HYDROCHLORIDE
  4. DULERA [Concomitant]
     Active Substance: FORMOTEROL FUMARATE DIHYDRATE\MOMETASONE FUROATE
  5. ALBUTEROL - NEBULIZER [Concomitant]
  6. VITAMIN C [Concomitant]
     Active Substance: ASCORBIC ACID
  7. LUNG TONIC TABLET [Concomitant]
  8. AMBIEN [Concomitant]
     Active Substance: ZOLPIDEM TARTRATE
  9. VIT. D [Concomitant]
  10. LIVER RESCUE [Concomitant]

REACTIONS (7)
  - Pain [None]
  - Muscular weakness [None]
  - Sleep disorder [None]
  - Arthralgia [None]
  - Loss of personal independence in daily activities [None]
  - Asthenia [None]
  - Epicondylitis [None]

NARRATIVE: CASE EVENT DATE: 20181224
